FAERS Safety Report 19773306 (Version 1)
Quarter: 2021Q3

REPORT INFORMATION
  Report Type: Spontaneous
  Country: US (occurrence: US)
  Receive Date: 20210901
  Receipt Date: 20210901
  Transmission Date: 20211014
  Serious: No
  Sender: FDA-Public Use
  Company Number: US-TEVA-2021-US-1947368

PATIENT
  Age: 64 Year
  Sex: Male

DRUGS (2)
  1. LORAZEPAM TEVA [Suspect]
     Active Substance: LORAZEPAM
     Indication: ANXIETY
     Route: 065
     Dates: start: 2009
  2. LORAZEPAM TEVA [Suspect]
     Active Substance: LORAZEPAM
     Indication: NERVOUSNESS
     Route: 065
     Dates: start: 20210727

REACTIONS (3)
  - Product quality issue [Unknown]
  - Dizziness [Unknown]
  - Drug ineffective [Unknown]

NARRATIVE: CASE EVENT DATE: 20210727
